FAERS Safety Report 4658870-8 (Version None)
Quarter: 2005Q2

REPORT INFORMATION
  Report Type: 
  Country: None (occurrence: None)
  Receive Date: 20050509
  Receipt Date: 20050426
  Transmission Date: 20051028
  Serious: Yes (Hospitalization)
  Sender: FDA-Public Use
  Company Number: 2005-04-1961

PATIENT
  Age: 60 Year
  Sex: Male

DRUGS (2)
  1. INTRON A [Suspect]
     Indication: MULTIPLE MYELOMA
     Dosage: 1.5 MU TIW SUBCUTANEOUS
     Route: 058
     Dates: start: 20040101
  2. HYDROCHLOROTHIAZIDE [Concomitant]

REACTIONS (2)
  - CONVULSION [None]
  - HAEMORRHAGIC STROKE [None]
